FAERS Safety Report 10192728 (Version 2)
Quarter: 2014Q2

REPORT INFORMATION
  Report Type: Spontaneous
  Country: US (occurrence: US)
  Receive Date: 20140523
  Receipt Date: 20140523
  Transmission Date: 20141212
  Serious: Yes (Death, Life-Threatening)
  Sender: FDA-Public Use
  Company Number: US-BRISTOL-MYERS SQUIBB COMPANY-20509584

PATIENT
  Age: 49 Year
  Sex: Male

DRUGS (4)
  1. ERBITUX SOLN FOR INF [Suspect]
     Indication: RECTAL CANCER
     Route: 042
     Dates: start: 20140212, end: 20140212
  2. FOLINIC ACID [Concomitant]
  3. FLUOROURACIL [Concomitant]
  4. IRINOTECAN [Concomitant]

REACTIONS (4)
  - Septic shock [Fatal]
  - Acute respiratory failure [Fatal]
  - Renal failure acute [Fatal]
  - Gastrointestinal perforation [Fatal]
